FAERS Safety Report 8810338 (Version 8)
Quarter: 2013Q3

REPORT INFORMATION
  Report Type: Spontaneous
  Country: US (occurrence: US)
  Receive Date: 20120926
  Receipt Date: 20130731
  Transmission Date: 20140515
  Serious: Yes (Hospitalization, Disabling, Other)
  Sender: FDA-Public Use
  Company Number: US-009507513-1209USA007688

PATIENT
  Sex: Female
  Weight: 84.81 kg

DRUGS (4)
  1. FOSAMAX [Suspect]
     Dosage: 70 MG, UNK
     Route: 048
     Dates: start: 199601, end: 20031004
  2. ACTONEL [Suspect]
     Dosage: 35 MG, UNK
     Route: 048
     Dates: start: 20040522, end: 20060419
  3. ACTONEL [Suspect]
     Dosage: 35 MG, UNK
     Route: 048
     Dates: end: 201107
  4. BONIVA [Suspect]
     Dosage: 150 MG, UNK
     Route: 048
     Dates: start: 20070318, end: 201012

REACTIONS (36)
  - Femur fracture [Unknown]
  - Intramedullary rod insertion [Unknown]
  - Leukocytosis [Recovered/Resolved]
  - Fall [Unknown]
  - Anxiety [Unknown]
  - Chest pain [Recovered/Resolved]
  - Low turnover osteopathy [Not Recovered/Not Resolved]
  - Femur fracture [Unknown]
  - Wrist fracture [Unknown]
  - Pulmonary mass [Recovered/Resolved]
  - Anaemia postoperative [Unknown]
  - Haemorrhage [Unknown]
  - Adverse event [Unknown]
  - Essential hypertension [Not Recovered/Not Resolved]
  - Hypercholesterolaemia [Not Recovered/Not Resolved]
  - Knee arthroplasty [Unknown]
  - Allergy to arthropod sting [Not Recovered/Not Resolved]
  - Dermatitis contact [Not Recovered/Not Resolved]
  - Spinal column stenosis [Unknown]
  - Stress urinary incontinence [Unknown]
  - Anaemia [Unknown]
  - Arthropathy [Unknown]
  - Dyslipidaemia [Unknown]
  - Tooth extraction [Unknown]
  - Arthritis [Unknown]
  - Osteoporosis [Unknown]
  - Urinary tract infection [Unknown]
  - Uterine prolapse [Unknown]
  - Cystocele [Unknown]
  - Wrist fracture [Unknown]
  - Dyspepsia [Unknown]
  - Gastrooesophageal reflux disease [Unknown]
  - Arthralgia [Not Recovered/Not Resolved]
  - Arthralgia [Unknown]
  - Hypersensitivity [Not Recovered/Not Resolved]
  - Drug hypersensitivity [Unknown]
